FAERS Safety Report 4614518-X (Version None)
Quarter: 2005Q1

REPORT INFORMATION
  Report Type: 
  Country: None (occurrence: None)
  Receive Date: 20050321
  Receipt Date: 20050315
  Transmission Date: 20050727
  Serious: Yes (Disabling)
  Sender: FDA-Public Use
  Company Number: FI-MERCK-0503FIN00005

PATIENT
  Age: 72 Year
  Sex: Female

DRUGS (14)
  1. DIGOXIN [Concomitant]
     Route: 048
     Dates: start: 19940502
  2. ZOPICLONE [Concomitant]
     Route: 048
     Dates: start: 19970625
  3. ZOCOR [Suspect]
     Indication: HYPERCHOLESTEROLAEMIA
     Route: 048
     Dates: start: 20020925, end: 20031215
  4. ZOCOR [Suspect]
     Route: 048
     Dates: start: 20031216, end: 20050203
  5. INSULIN HUMAN, ISOPHANE [Concomitant]
     Indication: DIABETES MELLITUS
     Route: 051
     Dates: start: 20040414
  6. RAMIPRIL [Concomitant]
     Indication: HYPERTENSION
     Route: 048
  7. RAMIPRIL [Concomitant]
     Indication: CARDIAC DISORDER
     Route: 048
  8. OXAZEPAM [Concomitant]
     Route: 048
  9. LEVOTHYROXINE SODIUM [Concomitant]
     Indication: HYPOTHYROIDISM
     Route: 048
     Dates: start: 19991124
  10. GLIMEPIRIDE [Concomitant]
     Indication: DIABETES MELLITUS
     Route: 048
     Dates: start: 20040414
  11. FUROSEMIDE [Concomitant]
     Route: 048
     Dates: start: 19940502
  12. BISOPROLOL FUMARATE [Concomitant]
     Route: 048
     Dates: start: 20041201, end: 20050113
  13. BISOPROLOL FUMARATE [Concomitant]
     Route: 048
     Dates: start: 20050114
  14. ACETAMINOPHEN [Concomitant]
     Route: 048

REACTIONS (3)
  - ASTHENIA [None]
  - BLOOD CREATINE PHOSPHOKINASE INCREASED [None]
  - PAIN [None]
